FAERS Safety Report 5073218-5 (Version None)
Quarter: 2006Q3

REPORT INFORMATION
  Report Type: 
  Country: None (occurrence: None)
  Receive Date: 20060802
  Receipt Date: 20060720
  Transmission Date: 20061208
  Serious: Yes (Hospitalization)
  Sender: FDA-Public Use
  Company Number: A-US2003-03387

PATIENT
  Age: 71 Year
  Sex: Female

DRUGS (2)
  1. TRACLEER [Suspect]
     Indication: PULMONARY HYPERTENSION
     Dosage: 62.5 MG, BID, ORAL; 125 MG, BID, ORAL
     Route: 048
     Dates: end: 20060720
  2. COUMADIN [Concomitant]

REACTIONS (8)
  - ATRIAL FIBRILLATION [None]
  - HEPATIC FAILURE [None]
  - INTERNATIONAL NORMALISED RATIO DECREASED [None]
  - MITRAL VALVE INCOMPETENCE [None]
  - MYOCARDIAL ISCHAEMIA [None]
  - OEDEMA PERIPHERAL [None]
  - RENAL FAILURE [None]
  - TREATMENT NONCOMPLIANCE [None]
